FAERS Safety Report 21163245 (Version 2)
Quarter: 2022Q3

REPORT INFORMATION
  Report Type: Spontaneous
  Country: US (occurrence: US)
  Receive Date: 20220802
  Receipt Date: 20220825
  Transmission Date: 20221027
  Serious: No
  Sender: FDA-Public Use
  Company Number: US-PFIZER INC-202201022144

PATIENT
  Age: 54 Year
  Sex: Female
  Weight: 51.26 kg

DRUGS (2)
  1. DESVENLAFAXINE SUCCINATE [Suspect]
     Active Substance: DESVENLAFAXINE SUCCINATE
     Dosage: 50 MG
  2. DESVENLAFAXINE SUCCINATE [Suspect]
     Active Substance: DESVENLAFAXINE SUCCINATE
     Dosage: 100 MG

REACTIONS (3)
  - Wrong technique in product usage process [Unknown]
  - Illness [Unknown]
  - Malabsorption [Unknown]
